FAERS Safety Report 5370290-X (Version None)
Quarter: 2007Q2

REPORT INFORMATION
  Report Type: 
  Country: None (occurrence: None)
  Receive Date: 20070625
  Receipt Date: 20070625
  Transmission Date: 20071010
  Serious: Yes (Other)
  Sender: FDA-Public Use
  Company Number: None

PATIENT
  Age: 55 Year
  Sex: Male
  Weight: 90.7194 kg

DRUGS (1)
  1. AMBIEN [Suspect]
     Dosage: PRESCRIPTION SINCE 9/06 #30; 3 RF USED APPROXIMATELY 30 TIMES SINCE 9/06
     Dates: start: 20060901

REACTIONS (4)
  - ABNORMAL BEHAVIOUR [None]
  - ABNORMAL SLEEP-RELATED EVENT [None]
  - AMNESIA [None]
  - SLEEP WALKING [None]
